FAERS Safety Report 18581842 (Version 2)
Quarter: 2020Q4

REPORT INFORMATION
  Report Type: Not Available
  Country: US (occurrence: US)
  Receive Date: 20201204
  Receipt Date: 20201221
  Transmission Date: 20210114
  Serious: No
  Sender: FDA-Public Use
  Company Number: US-NEUROCRINE BIOSCIENCES INC.-2020NBI04353

PATIENT
  Age: 63 Year
  Sex: Female

DRUGS (11)
  1. DEPAKOTE [Suspect]
     Active Substance: DIVALPROEX SODIUM
     Dates: start: 20201030
  2. INGREZZA [Suspect]
     Active Substance: VALBENAZINE
     Indication: TARDIVE DYSKINESIA
     Route: 048
     Dates: start: 20200626
  3. DEPAKOTE [Suspect]
     Active Substance: DIVALPROEX SODIUM
     Indication: PRODUCT USED FOR UNKNOWN INDICATION
     Dates: end: 20201029
  4. MULTIVITAMIN [Concomitant]
     Active Substance: VITAMINS
  5. LORAZEPAM. [Concomitant]
     Active Substance: LORAZEPAM
  6. CLOZAPINE. [Concomitant]
     Active Substance: CLOZAPINE
  7. PROTONIX [Concomitant]
     Active Substance: PANTOPRAZOLE SODIUM
  8. GLUCOSAMINE [Concomitant]
     Active Substance: GLUCOSAMINE
  9. OLANZAPINE. [Concomitant]
     Active Substance: OLANZAPINE
  10. MIRALAX [Concomitant]
     Active Substance: POLYETHYLENE GLYCOL 3350
  11. BENZTROPINE. [Concomitant]
     Active Substance: BENZTROPINE

REACTIONS (2)
  - Tardive dyskinesia [Recovering/Resolving]
  - Asthenia [Recovered/Resolved]

NARRATIVE: CASE EVENT DATE: 20201030
